FAERS Safety Report 4530109-3 (Version None)
Quarter: 2004Q4

REPORT INFORMATION
  Report Type: 
  Country: None (occurrence: None)
  Receive Date: 20041217
  Receipt Date: 20041208
  Transmission Date: 20050328
  Serious: Yes (Hospitalization)
  Sender: FDA-Public Use
  Company Number: GB-ABBOTT-04P-167-0282738-00

PATIENT
  Age: 14 Year
  Sex: Female

DRUGS (9)
  1. DEPAKOTE [Suspect]
     Indication: MOOD ALTERED
     Route: 048
     Dates: start: 20040901
  2. DIAZEPAM [Suspect]
     Indication: SEDATION
     Route: 048
     Dates: start: 20040820, end: 20040929
  3. SERTRALINE [Suspect]
     Indication: OBSESSIVE-COMPULSIVE DISORDER
     Route: 048
     Dates: start: 20040508
  4. RISPERIDONE [Suspect]
     Indication: PSYCHOTIC DISORDER
     Route: 030
     Dates: start: 20040611, end: 20041016
  5. RISPERIDONE [Suspect]
     Route: 065
     Dates: start: 20040604, end: 20040810
  6. OLANZAPINE [Concomitant]
     Indication: DRUG USE FOR UNKNOWN INDICATION
     Route: 048
  7. LORAZEPAM [Concomitant]
     Indication: ANXIETY
     Dosage: 1-4 MG DAILY
     Route: 065
  8. LORAZEPAM [Concomitant]
     Indication: AGITATION
  9. OXYTETRACYCLINE [Concomitant]
     Indication: ACNE
     Route: 065
     Dates: start: 20040516

REACTIONS (5)
  - CONSTIPATION [None]
  - HYPERPROLACTINAEMIA [None]
  - URINARY RETENTION [None]
  - URINARY TRACT INFECTION [None]
  - WEIGHT INCREASED [None]
